FAERS Safety Report 5335955-4 (Version None)
Quarter: 2007Q2

REPORT INFORMATION
  Report Type: 
  Country: None (occurrence: None)
  Receive Date: 20070302
  Receipt Date: 20061211
  Transmission Date: 20071010
  Serious: Yes (Hospitalization)
  Sender: FDA-Public Use
  Company Number: 2479

PATIENT

DRUGS (5)
  1. TARGRETIN [Suspect]
     Indication: MYCOSIS FUNGOIDES
  2. TARGRETIN [Suspect]
     Indication: PERIPHERAL T-CELL LYMPHOMA UNSPECIFIED
  3. ONTAK [Suspect]
     Indication: MYCOSIS FUNGOIDES
     Route: 042
  4. ONTAK [Suspect]
     Indication: PERIPHERAL T-CELL LYMPHOMA UNSPECIFIED
     Route: 042
  5. BACTRIM [Suspect]

REACTIONS (2)
  - SKIN EXFOLIATION [None]
  - SKIN NECROSIS [None]
